FAERS Safety Report 15649872 (Version 5)
Quarter: 2019Q1

REPORT INFORMATION
  Report Type: Report from Study
  Country: CA (occurrence: CA)
  Receive Date: 20181123
  Receipt Date: 20190130
  Transmission Date: 20190417
  Serious: Yes (Other)
  Sender: FDA-Public Use
  Company Number: PHHY2018CA158296

PATIENT
  Sex: Female

DRUGS (2)
  1. KISQALI [Suspect]
     Active Substance: RIBOCICLIB
     Dosage: 400 MG, UNK
     Route: 048
     Dates: end: 20190122
  2. KISQALI [Suspect]
     Active Substance: RIBOCICLIB
     Indication: BREAST CANCER METASTATIC
     Dosage: UNK
     Route: 048
     Dates: start: 20181107

REACTIONS (14)
  - Pruritus [Unknown]
  - Abdominal pain [Unknown]
  - Nausea [Unknown]
  - Fatigue [Unknown]
  - Oedema peripheral [Unknown]
  - Back pain [Unknown]
  - Anal haemorrhage [Unknown]
  - Musculoskeletal discomfort [Unknown]
  - Drug intolerance [Unknown]
  - Dizziness [Unknown]
  - Chest discomfort [Unknown]
  - Pain [Unknown]
  - Weight decreased [Unknown]
  - Diarrhoea [Unknown]
